FAERS Safety Report 5418599-5 (Version None)
Quarter: 2007Q3

REPORT INFORMATION
  Report Type: 
  Country: None (occurrence: None)
  Receive Date: 20070817
  Receipt Date: 20070806
  Transmission Date: 20080115
  Serious: Yes (Hospitalization, Other)
  Sender: FDA-Public Use
  Company Number: US-SHR-US-2007-018642

PATIENT
  Age: 50 Year
  Sex: Female
  Weight: 109.75 kg

DRUGS (2)
  1. BETASERON [Suspect]
     Indication: RELAPSING-REMITTING MULTIPLE SCLEROSIS
     Route: 058
     Dates: start: 20000101, end: 20040101
  2. BETASERON [Suspect]
     Dosage: 4 MIU, EVERY 2D
     Route: 058
     Dates: start: 20070416

REACTIONS (3)
  - BREAST CANCER FEMALE [None]
  - INFLUENZA LIKE ILLNESS [None]
  - OVARIAN CANCER [None]
